FAERS Safety Report 5332273-5 (Version None)
Quarter: 2007Q2

REPORT INFORMATION
  Report Type: 
  Country: None (occurrence: None)
  Receive Date: 20070306
  Receipt Date: 20060522
  Transmission Date: 20071010
  Serious: Yes (Hospitalization)
  Sender: FDA-Public Use
  Company Number: A03200603456

PATIENT
  Age: 80 Year
  Sex: Female
  Weight: 81.63 kg

DRUGS (12)
  1. PLAVIX [Suspect]
     Indication: CEREBROVASCULAR ACCIDENT
     Dosage: 75 MG QD - ORAL
     Route: 048
     Dates: start: 19960101, end: 20060118
  2. PLAVIX [Suspect]
     Indication: CEREBROVASCULAR ACCIDENT
     Dosage: 75 MG QD - ORAL
     Route: 048
     Dates: start: 20060421
  3. ... [Concomitant]
  4. COUMADIN [Suspect]
     Dosage: 2.5 MG QD - ORAL
     Route: 048
     Dates: start: 20060101, end: 20060501
  5. ACETYLSALICYLIC ACID SRT [Concomitant]
  6. FUROSEMIDE [Concomitant]
  7. LEVOTHYROXINE SODIUM [Concomitant]
  8. CLONIDINE [Concomitant]
  9. CARDIA XT [Concomitant]
  10. METOPROLOL SUCCINATE [Concomitant]
  11. CETIRIZINE HYDROCHLORIDE [Concomitant]
  12. ATORVASTATIN [Concomitant]

REACTIONS (5)
  - BLOOD POTASSIUM INCREASED [None]
  - BLOOD PRESSURE INCREASED [None]
  - CEREBROVASCULAR ACCIDENT [None]
  - CONTUSION [None]
  - EAR HAEMORRHAGE [None]
